FAERS Safety Report 25982460 (Version 1)
Quarter: 2025Q4

REPORT INFORMATION
  Report Type: Report from Study
  Country: EU (occurrence: EU)
  Receive Date: 20251031
  Receipt Date: 20251031
  Transmission Date: 20260118
  Serious: Yes (Other)
  Sender: AMGEN
  Company Number: EU-AMGEN-DEUSL2023161694

PATIENT
  Age: 77 Year
  Sex: Male

DRUGS (11)
  1. OTEZLA [Suspect]
     Active Substance: APREMILAST
     Indication: Psoriasis
     Dosage: UNK UNK, QD
     Route: 048
     Dates: start: 20230606
  2. OTEZLA [Suspect]
     Active Substance: APREMILAST
     Dosage: UNK UNK, QD
     Route: 048
     Dates: start: 20230609
  3. OTEZLA [Suspect]
     Active Substance: APREMILAST
     Dosage: UNK UNK, QD
     Route: 048
  4. OTEZLA [Suspect]
     Active Substance: APREMILAST
     Dosage: UNK UNK, QD
     Route: 048
  5. OTEZLA [Suspect]
     Active Substance: APREMILAST
     Dosage: 30 MILLIGRAM, BID
     Route: 048
  6. ELIQUIS [Suspect]
     Active Substance: APIXABAN
     Indication: Blood viscosity increased
     Dosage: 5 MILLIGRAM, BID
     Route: 065
  7. PREGABALIN [Concomitant]
     Active Substance: PREGABALIN
     Dosage: 75 MILLIGRAM, QD
  8. MOVICOL [Concomitant]
     Active Substance: POLYETHYLENE GLYCOL 3350\POTASSIUM CHLORIDE\SODIUM BICARBONATE\SODIUM CHLORIDE
     Dosage: UNK UNK, QD
  9. ERYTHROPOIETIN [Concomitant]
     Active Substance: ERYTHROPOIETIN
     Indication: Product used for unknown indication
     Dosage: UNK, 2 TIMES/WK
     Route: 065
  10. Oxycodone g.l. [Concomitant]
     Dosage: 5 MILLIGRAM, QD
  11. LORATADINE [Concomitant]
     Active Substance: LORATADINE
     Dosage: 10 MILLIGRAM, BID

REACTIONS (19)
  - Cardiomyopathy [Unknown]
  - Prostate cancer metastatic [Unknown]
  - Spinal operation [Unknown]
  - Atrial fibrillation [Unknown]
  - Cataract [Unknown]
  - Chronic kidney disease [Unknown]
  - Pancytopenia [Unknown]
  - Diarrhoea [Unknown]
  - Fall [Unknown]
  - Ligament sprain [Not Recovered/Not Resolved]
  - Weight increased [Unknown]
  - Peripheral swelling [Unknown]
  - Pruritus genital [Unknown]
  - Blood test abnormal [Unknown]
  - Psoriasis [Unknown]
  - Hypertension [Unknown]
  - Osteoarthritis [Unknown]
  - Restless legs syndrome [Unknown]
  - Vitamin D deficiency [Unknown]

NARRATIVE: CASE EVENT DATE: 20230601
